FAERS Safety Report 9639474 (Version 1)
Quarter: 2013Q4

REPORT INFORMATION
  Report Type: Spontaneous
  Country: US (occurrence: US)
  Receive Date: 20131023
  Receipt Date: 20131023
  Transmission Date: 20140711
  Serious: Yes (Other)
  Sender: FDA-Public Use
  Company Number: US-AMGEN-USASP2013073689

PATIENT
  Age: 55 Year
  Sex: Female

DRUGS (10)
  1. ENBREL [Suspect]
     Indication: PSORIATIC ARTHROPATHY
     Dosage: 50 MG, UNK
     Route: 065
  2. METOPROLOL [Concomitant]
     Dosage: 25 MG, QD
  3. ZOLOFT [Concomitant]
     Dosage: 75 MG, UNK
  4. ACIPHEX [Concomitant]
     Dosage: UNK
  5. NASONEX [Concomitant]
     Dosage: UNK
  6. SUDAFED                            /00076302/ [Concomitant]
     Dosage: UNK
  7. IMITREX                            /01044801/ [Concomitant]
     Dosage: UNK
  8. PLETAL [Concomitant]
     Dosage: UNK
  9. SKELAXIN                           /00611501/ [Concomitant]
     Dosage: UNK
  10. FIORICET [Concomitant]
     Dosage: UNK

REACTIONS (3)
  - Anaphylactic reaction [Unknown]
  - Wheezing [Not Recovered/Not Resolved]
  - Skin disorder [Unknown]
